FAERS Safety Report 7463723-6 (Version None)
Quarter: 2011Q2

REPORT INFORMATION
  Report Type: 
  Country: None (occurrence: None)
  Receive Date: 20110506
  Receipt Date: 20110321
  Transmission Date: 20111010
  Serious: Yes (Other)
  Sender: FDA-Public Use
  Company Number: US-BAYER-201039838NA

PATIENT
  Age: 22 Year
  Sex: Female

DRUGS (7)
  1. FLAXSEED OIL [Concomitant]
  2. ACIDOPHILUS [Concomitant]
  3. ACIPHEX [Concomitant]
     Dosage: 20 MG, QD
  4. YAZ [Suspect]
     Indication: ACNE
  5. YASMIN [Suspect]
     Indication: ACNE
  6. DOXYCYCLINE [Concomitant]
     Dosage: 50 MG, QD
  7. LEXAPRO [Concomitant]
     Dosage: 10 MG, QD

REACTIONS (2)
  - CHOLELITHIASIS [None]
  - INJURY [None]
